FAERS Safety Report 7902356-1 (Version None)
Quarter: 2011Q4

REPORT INFORMATION
  Report Type: 
  Country: None (occurrence: None)
  Receive Date: 20111108
  Receipt Date: 20111103
  Transmission Date: 20120403
  Serious: Yes (Hospitalization)
  Sender: FDA-Public Use
  Company Number: DE-ABBOTT-11P-062-0871445-00

PATIENT
  Sex: Male
  Weight: 43 kg

DRUGS (2)
  1. HUMIRA [Suspect]
     Indication: ANKYLOSING SPONDYLITIS
     Route: 058
     Dates: start: 20090618, end: 20110715
  2. HUMIRA [Suspect]
     Dates: start: 20110929

REACTIONS (3)
  - DEVICE BREAKAGE [None]
  - SCIATICA [None]
  - SPINAL OSTEOARTHRITIS [None]
